FAERS Safety Report 7102898-5 (Version None)
Quarter: 2010Q4

REPORT INFORMATION
  Report Type: 
  Country: None (occurrence: None)
  Receive Date: 20101108
  Receipt Date: 20101026
  Transmission Date: 20110411
  Serious: Yes (Hospitalization)
  Sender: FDA-Public Use
  Company Number: IND1-FR-2010-0082

PATIENT
  Age: 58 Year
  Sex: Male

DRUGS (10)
  1. INDOCIN [Suspect]
     Indication: PSORIASIS
     Dosage: 150 MG (25 MG,2 IN 8 HR) ORAL
     Route: 048
     Dates: start: 20100529, end: 20100720
  2. SULFASALAZINE [Suspect]
     Indication: PSORIASIS
     Dosage: 3000 MG (500 MG,2 IN 8 HR) ORAL
     Route: 048
     Dates: start: 20100529, end: 20100719
  3. PARACETAMOL (PARACETAMOL) (PARACETAMOL) [Suspect]
     Indication: PRODUCT USED FOR UNKNOWN INDICATION
     Dates: start: 20100501, end: 20100701
  4. SOLUPRED (PREDNISOLONE SODIUM SULFOBENZOATE) (PREDNISOLONE SODIUM SULF [Suspect]
     Indication: PRODUCT USED FOR UNKNOWN INDICATION
     Dates: start: 20100710, end: 20100701
  5. EBASTINE [Suspect]
     Indication: PRODUCT USED FOR UNKNOWN INDICATION
     Dates: start: 20100710, end: 20100701
  6. CLARITHROMYCIN [Suspect]
     Indication: PRODUCT USED FOR UNKNOWN INDICATION
     Dates: start: 20100710, end: 20100715
  7. JOSACYNE (JOSAMYCIN) (JOSAMYCIN) [Suspect]
     Indication: PRODUCT USED FOR UNKNOWN INDICATION
     Dates: start: 20100717, end: 20100701
  8. NATRIUM BICARBONATE [Suspect]
     Indication: PRODUCT USED FOR UNKNOWN INDICATION
     Dates: start: 20100701, end: 20100701
  9. POLERY (CODEINE, ETHYLMORPHINE, SODIUM BENZOATE, SODIUM BROMIDE, BELLA [Suspect]
     Indication: PRODUCT USED FOR UNKNOWN INDICATION
     Dates: start: 20100717, end: 20100701
  10. MALARONE [Suspect]
     Indication: PRODUCT USED FOR UNKNOWN INDICATION
     Dates: start: 20100604, end: 20100627

REACTIONS (1)
  - DRUG RASH WITH EOSINOPHILIA AND SYSTEMIC SYMPTOMS [None]
